FAERS Safety Report 21770003 (Version 2)
Quarter: 2023Q1

REPORT INFORMATION
  Report Type: Spontaneous
  Country: JP (occurrence: JP)
  Receive Date: 20221223
  Receipt Date: 20230109
  Transmission Date: 20230418
  Serious: No
  Sender: FDA-Public Use
  Company Number: JP-BRISTOL-MYERS SQUIBB COMPANY-2022-130198

PATIENT
  Age: 80 Year
  Sex: Female

DRUGS (6)
  1. ELIQUIS [Suspect]
     Active Substance: APIXABAN
     Indication: Product used for unknown indication
     Route: 048
     Dates: start: 2022
  2. AMLODIPINE BESYLATE [Concomitant]
     Active Substance: AMLODIPINE BESYLATE
     Indication: Product used for unknown indication
     Dosage: TAKEN ORALLY AT 5 MG 1 TABLET
     Route: 048
     Dates: start: 20210526
  3. LANSOPRAZOLE [Concomitant]
     Active Substance: LANSOPRAZOLE
     Indication: Product used for unknown indication
     Dosage: 15MG TAKEN ORALLY AT 15 MG 1 TABLET
     Route: 048
     Dates: start: 20210526
  4. ROSUVASTATIN CALCIUM [Concomitant]
     Active Substance: ROSUVASTATIN CALCIUM
     Indication: Product used for unknown indication
     Dosage: TAKEN ORALLY AT 5 MG 1 TABLET
     Route: 048
     Dates: start: 20220902
  5. LINAGLIPTIN [Concomitant]
     Active Substance: LINAGLIPTIN
     Indication: Product used for unknown indication
     Dosage: TAKEN ORALLY AT 5 MG 1 TABLET
     Route: 048
     Dates: start: 202203, end: 20220930
  6. LEVETIRACETAM [Concomitant]
     Active Substance: LEVETIRACETAM
     Indication: Product used for unknown indication
     Dosage: TAKEN ORALLY AT 500 MG 2 TABLETS
     Route: 048
     Dates: start: 20221223

REACTIONS (2)
  - Breath odour [Recovered/Resolved]
  - Urine odour abnormal [Unknown]

NARRATIVE: CASE EVENT DATE: 20220901
